FAERS Safety Report 7822319-4 (Version None)
Quarter: 2011Q4

REPORT INFORMATION
  Report Type: 
  Country: None (occurrence: None)
  Receive Date: 20111018
  Receipt Date: 20110120
  Transmission Date: 20120403
  Serious: No
  Sender: FDA-Public Use
  Company Number: US-ASTRAZENECA-2011SE04029

PATIENT
  Age: 61 Year
  Sex: Male

DRUGS (2)
  1. NEXIUM [Concomitant]
     Route: 048
  2. SYMBICORT [Suspect]
     Indication: CHRONIC OBSTRUCTIVE PULMONARY DISEASE
     Dosage: THE DOSAGE: 80/4.5 MCG, FREQUENCY: UNKNOWN.
     Route: 055

REACTIONS (2)
  - DRUG DOSE OMISSION [None]
  - DYSPNOEA [None]
